FAERS Safety Report 23180179 (Version 2)
Quarter: 2024Q4

REPORT INFORMATION
  Report Type: Spontaneous
  Country: US (occurrence: US)
  Receive Date: 20231114
  Receipt Date: 20241104
  Transmission Date: 20250114
  Serious: No
  Sender: AUROBINDO
  Company Number: US-AUROBINDO-AUR-APL-2023-059132

PATIENT
  Sex: Female

DRUGS (1)
  1. INCASSIA [Suspect]
     Active Substance: NORETHINDRONE
     Indication: Oral contraception
     Dosage: UNK
     Route: 065

REACTIONS (2)
  - Product dose omission issue [Unknown]
  - Product blister packaging issue [Unknown]
